FAERS Safety Report 5287969-0 (Version None)
Quarter: 2007Q2

REPORT INFORMATION
  Report Type: 
  Country: None (occurrence: None)
  Receive Date: 20070405
  Receipt Date: 20070327
  Transmission Date: 20071010
  Serious: Yes (Other)
  Sender: FDA-Public Use
  Company Number: SE-JNJFOC-20070306993

PATIENT
  Age: 5 Year
  Sex: Female

DRUGS (9)
  1. SPORANOX [Suspect]
     Indication: ACUTE LYMPHOCYTIC LEUKAEMIA
     Route: 048
  2. VINCRISTINE [Interacting]
     Indication: ACUTE LYMPHOCYTIC LEUKAEMIA
     Route: 042
  3. XYLOCAIN VISKOS [Concomitant]
     Route: 048
  4. ALVEDON [Concomitant]
     Route: 048
  5. SOLU-MEDROL [Concomitant]
     Route: 050
  6. MYCOSTATIN [Concomitant]
     Route: 048
  7. MORFIN MEDA [Concomitant]
     Route: 048
  8. METHOTREXATE [Concomitant]
     Route: 065
  9. LACTULOSE [Concomitant]
     Route: 065

REACTIONS (5)
  - CONVULSION [None]
  - DRUG INTERACTION [None]
  - HYPERTENSION [None]
  - HYPONATRAEMIA [None]
  - POLYNEUROPATHY [None]
